FAERS Safety Report 6625611-4 (Version None)
Quarter: 2010Q1

REPORT INFORMATION
  Report Type: 
  Country: None (occurrence: None)
  Receive Date: 20100223
  Receipt Date: 20091111
  Transmission Date: 20100710
  Serious: No
  Sender: FDA-Public Use
  Company Number: 8054553

PATIENT
  Sex: Female
  Weight: 63.6 kg

DRUGS (7)
  1. CERTOLIZUMAB PEGOL (UCB, INC) [Suspect]
     Indication: RHEUMATOID ARTHRITIS
     Dosage: 400 MG 1X2 WEEKS, EVERY 2 WEEKS SUBCUTANEOUS
     Route: 058
     Dates: start: 20091013
  2. METHOTREXATE [Concomitant]
  3. FISH OIL [Concomitant]
  4. VITAMIN D [Concomitant]
  5. MULTI-VITAMIN [Concomitant]
  6. FOLIC ACID [Concomitant]
  7. MOBIC [Concomitant]

REACTIONS (1)
  - NODULE [None]
